FAERS Safety Report 5954672-0 (Version None)
Quarter: 2008Q4

REPORT INFORMATION
  Report Type: 
  Country: None (occurrence: None)
  Receive Date: 20081117
  Receipt Date: 20081104
  Transmission Date: 20090506
  Serious: Yes (Other)
  Sender: FDA-Public Use
  Company Number: PHEH2008US09899

PATIENT
  Sex: Female

DRUGS (1)
  1. GENTEAL MODERATE LUBRICANT EYE DROPS (NVO) [Suspect]
     Dosage: UNK
     Dates: start: 20081027

REACTIONS (4)
  - EYE IRRITATION [None]
  - EYE PAIN [None]
  - GLARE [None]
  - MYDRIASIS [None]
